FAERS Safety Report 8146085 (Version 3)
Quarter: 2014Q1

REPORT INFORMATION
  Report Type: Spontaneous
  Country: US (occurrence: US)
  Receive Date: 20110921
  Receipt Date: 20140320
  Transmission Date: 20141002
  Serious: Yes (Hospitalization, Other)
  Sender: FDA-Public Use
  Company Number: US-BAYER-2011-085314

PATIENT
  Age: 24 Year
  Sex: Female
  Weight: 68.03 kg

DRUGS (6)
  1. YASMIN [Suspect]
     Dosage: UNK
     Dates: start: 200701, end: 2010
  2. OCELLA [Suspect]
     Dosage: UNK
     Dates: start: 2007, end: 2010
  3. LEVAQUIN [Concomitant]
  4. PERCOCET [Concomitant]
  5. ABREVA [Concomitant]
  6. ADDERALL [Concomitant]

REACTIONS (8)
  - Cholecystectomy [None]
  - Cholecystitis chronic [None]
  - Injury [None]
  - Pain [None]
  - General physical health deterioration [None]
  - Anxiety [None]
  - Anhedonia [None]
  - Emotional distress [None]
